FAERS Safety Report 4783867-7 (Version None)
Quarter: 2005Q3

REPORT INFORMATION
  Report Type: 
  Country: None (occurrence: None)
  Receive Date: 20050928
  Receipt Date: 20050131
  Transmission Date: 20060218
  Serious: Yes (Hospitalization)
  Sender: FDA-Public Use
  Company Number: 2005FR--00324

PATIENT
  Age: 84 Year
  Sex: Female

DRUGS (5)
  1. IBUPROFEN [Suspect]
     Indication: GOUT
     Dosage: 400 MG, ORAL
     Route: 048
  2. IBUPROFEN [Suspect]
     Indication: PAIN
     Dosage: 400 MG, ORAL
     Route: 048
  3. IBUPROFEN [Suspect]
     Indication: SCIATICA
     Dosage: 400 MG, ORAL
     Route: 048
  4. ADALAT CC [Concomitant]
  5. TERAZOSIN HCL [Concomitant]

REACTIONS (2)
  - GASTRIC ULCER [None]
  - GASTROINTESTINAL HAEMORRHAGE [None]
